FAERS Safety Report 10966952 (Version 1)
Quarter: 2015Q1

REPORT INFORMATION
  Report Type: Spontaneous
  Country: US (occurrence: None)
  Receive Date: 20150327
  Receipt Date: 20150327
  Transmission Date: 20150721
  Serious: No
  Sender: FDA-Public Use
  Company Number: None

PATIENT
  Age: 49 Year
  Sex: Male

DRUGS (1)
  1. ENBREL [Suspect]
     Active Substance: ETANERCEPT
     Indication: PSORIATIC ARTHROPATHY
     Dosage: 50MG (1ML)
     Route: 058

REACTIONS (9)
  - Tremor [None]
  - Gastrooesophageal reflux disease [None]
  - Palpitations [None]
  - Flushing [None]
  - Chest discomfort [None]
  - Vomiting [None]
  - Dizziness [None]
  - Chest pain [None]
  - Headache [None]

NARRATIVE: CASE EVENT DATE: 20150324
